FAERS Safety Report 12739087 (Version 1)
Quarter: 2016Q3

REPORT INFORMATION
  Report Type: Report from Study
  Country: BR (occurrence: BR)
  Receive Date: 20160912
  Receipt Date: 20160912
  Transmission Date: 20161109
  Serious: Yes (Other)
  Sender: FDA-Public Use
  Company Number: BR-ABBVIE-16K-020-1719601-00

PATIENT
  Age: 44 Year
  Sex: Female
  Weight: 70 kg

DRUGS (3)
  1. HUMIRA [Suspect]
     Active Substance: ADALIMUMAB
     Route: 058
     Dates: start: 20160817
  2. METHOTREXATE. [Concomitant]
     Active Substance: METHOTREXATE
     Indication: ARTHRITIS
     Route: 048
     Dates: start: 2003, end: 201605
  3. HUMIRA [Suspect]
     Active Substance: ADALIMUMAB
     Indication: RHEUMATOID ARTHRITIS
     Route: 058

REACTIONS (23)
  - Tendonitis [Unknown]
  - Weight increased [Recovering/Resolving]
  - Osteoarthritis [Not Recovered/Not Resolved]
  - Bone fragmentation [Unknown]
  - Swelling [Recovering/Resolving]
  - Synovial rupture [Unknown]
  - Bone marrow oedema [Unknown]
  - Pain [Unknown]
  - Spinal osteoarthritis [Not Recovered/Not Resolved]
  - Chondropathy [Unknown]
  - Nodule [Unknown]
  - Intervertebral disc protrusion [Unknown]
  - Tenosynovitis [Unknown]
  - Increased viscosity of upper respiratory secretion [Unknown]
  - Liver disorder [Unknown]
  - Depression [Not Recovered/Not Resolved]
  - Exostosis [Unknown]
  - Bone cyst [Unknown]
  - Procedural pain [Not Recovered/Not Resolved]
  - Chondropathy [Not Recovered/Not Resolved]
  - Carpal tunnel syndrome [Unknown]
  - Liver disorder [Not Recovered/Not Resolved]
  - Joint ankylosis [Unknown]

NARRATIVE: CASE EVENT DATE: 2005
